FAERS Safety Report 4548497-0 (Version None)
Quarter: 2005Q1

REPORT INFORMATION
  Report Type: 
  Country: None (occurrence: None)
  Receive Date: 20050110
  Receipt Date: 20040625
  Transmission Date: 20050727
  Serious: Yes (Other)
  Sender: FDA-Public Use
  Company Number: 2004JP001225

PATIENT
  Age: 71 Year
  Sex: Female

DRUGS (5)
  1. SAWACILLIN [Suspect]
     Dosage: 750MG TWICE PER DAY
     Route: 048
     Dates: start: 20040213, end: 20040214
  2. KLARICID [Suspect]
     Dosage: 200MG TWICE PER DAY
     Route: 048
     Dates: start: 20040213, end: 20040214
  3. TAKEPRON [Suspect]
     Dosage: 30MG TWICE PER DAY
     Route: 048
     Dates: start: 20040213, end: 20040214
  4. LIPOVAS [Concomitant]
     Route: 065
     Dates: start: 19920302
  5. GASTER D [Concomitant]
     Route: 065
     Dates: start: 20040116, end: 20040213

REACTIONS (4)
  - EXANTHEM [None]
  - OEDEMA PERIPHERAL [None]
  - PRURITUS [None]
  - PYREXIA [None]
